FAERS Safety Report 12192194 (Version 1)
Quarter: 2016Q1

REPORT INFORMATION
  Report Type: Spontaneous
  Country: GR (occurrence: GR)
  Receive Date: 20160318
  Receipt Date: 20160318
  Transmission Date: 20160526
  Serious: Yes (Other)
  Sender: FDA-Public Use
  Company Number: GR-AMGEN-GRCSP2016032600

PATIENT
  Age: 58 Year
  Sex: Female

DRUGS (1)
  1. PROLIA [Suspect]
     Active Substance: DENOSUMAB
     Indication: PRODUCT USED FOR UNKNOWN INDICATION
     Dosage: UNK
     Route: 065
     Dates: start: 201308

REACTIONS (9)
  - Feeling hot [Unknown]
  - Rash [Unknown]
  - Eczema [Unknown]
  - Swelling [Unknown]
  - Lenticular opacities [Unknown]
  - Skin infection [Unknown]
  - Mouth ulceration [Not Recovered/Not Resolved]
  - Impaired healing [Unknown]
  - Erythema [Unknown]
